FAERS Safety Report 17333492 (Version 1)
Quarter: 2020Q1

REPORT INFORMATION
  Report Type: Spontaneous
  Country: SE (occurrence: SE)
  Receive Date: 20200128
  Receipt Date: 20200128
  Transmission Date: 20200409
  Serious: Yes (Hospitalization)
  Sender: FDA-Public Use
  Company Number: SE-PURDUE-GBR-2020-0074459

PATIENT
  Age: 86 Year
  Sex: Female

DRUGS (13)
  1. ATORVASTATIN [Concomitant]
     Active Substance: ATORVASTATIN
     Dosage: 40 MG, UNK
     Dates: start: 20170823
  2. MIRTAZAPIN ACTAVIS [Concomitant]
     Active Substance: MIRTAZAPINE
     Dates: start: 20181023
  3. METOPROLOL. [Concomitant]
     Active Substance: METOPROLOL
     Dosage: UNK
     Dates: start: 20170823
  4. ALVEDON [Concomitant]
     Active Substance: ACETAMINOPHEN
     Dates: start: 20180406
  5. HYDROCHLOROTHIAZIDE. [Concomitant]
     Active Substance: HYDROCHLOROTHIAZIDE
     Dates: start: 20190208
  6. IMDUR [Concomitant]
     Active Substance: ISOSORBIDE MONONITRATE
     Dates: start: 20180406
  7. MIRTAZAPIN ACTAVIS [Suspect]
     Active Substance: MIRTAZAPINE
     Indication: PRODUCT USED FOR UNKNOWN INDICATION
     Route: 065
     Dates: start: 20181023
  8. TROMBYL [Concomitant]
     Active Substance: ASPIRIN
     Dates: start: 20170823
  9. FURIX [Concomitant]
     Dates: start: 20180809
  10. GANFORT [Concomitant]
     Active Substance: BIMATOPROST\TIMOLOL
     Dosage: STREGTH 0,3 MG/ML + 5 MG/ML
     Dates: start: 20170526
  11. IMOVANE [Concomitant]
     Active Substance: ZOPICLONE
     Dosage: 7.5 MG, PRN
     Dates: start: 20170823
  12. PREVISON [Concomitant]
     Active Substance: MESTRANOL\NORETHYNODREL
     Dates: start: 20180216
  13. OXYNORM [Suspect]
     Active Substance: OXYCODONE HYDROCHLORIDE
     Indication: PRODUCT USED FOR UNKNOWN INDICATION
     Dosage: 5 MG, DAILY
     Route: 065
     Dates: start: 2019

REACTIONS (3)
  - Hallucination [Recovering/Resolving]
  - Fatigue [Recovering/Resolving]
  - Personality change [Recovering/Resolving]

NARRATIVE: CASE EVENT DATE: 201910
